FAERS Safety Report 25813964 (Version 2)
Quarter: 2025Q4

REPORT INFORMATION
  Report Type: Spontaneous
  Country: US (occurrence: US)
  Receive Date: 20250917
  Receipt Date: 20251217
  Transmission Date: 20260119
  Serious: No
  Sender: ARDELYX
  Company Number: US-ARDELYX-2025ARDX005492

PATIENT
  Age: 40 Year
  Sex: Male

DRUGS (2)
  1. XPHOZAH [Suspect]
     Active Substance: TENAPANOR HYDROCHLORIDE
     Indication: Chronic kidney disease
     Dosage: 20 MG, BID
     Route: 048
     Dates: start: 202507
  2. XPHOZAH [Suspect]
     Active Substance: TENAPANOR HYDROCHLORIDE
     Dosage: 30 MG, BID
     Route: 048

REACTIONS (4)
  - Blood phosphorus abnormal [Recovered/Resolved]
  - Product use issue [Unknown]
  - Product distribution issue [Unknown]
  - Therapy interrupted [Unknown]

NARRATIVE: CASE EVENT DATE: 20251015
